FAERS Safety Report 8989689 (Version 1)
Quarter: 2012Q4

REPORT INFORMATION
  Report Type: 
  Country: US (occurrence: US)
  Receive Date: 20121228
  Receipt Date: 20121228
  Transmission Date: 20130627
  Serious: No
  Sender: FDA-Public Use
  Company Number: US-009507513-1212USA009288

PATIENT
  Age: 72 Year
  Sex: Female

DRUGS (3)
  1. JANUVIA [Suspect]
     Indication: TYPE 2 DIABETES MELLITUS
     Dosage: UNK mg, UNK
     Route: 048
     Dates: start: 201201
  2. TRICOR (ADENOSINE) [Concomitant]
  3. ZOCOR [Concomitant]
     Route: 048

REACTIONS (2)
  - Dry mouth [Not Recovered/Not Resolved]
  - Wrong technique in drug usage process [Unknown]
